FAERS Safety Report 11870036 (Version 1)
Quarter: 2015Q4

REPORT INFORMATION
  Report Type: Spontaneous
  Country: US (occurrence: None)
  Receive Date: 20151223
  Receipt Date: 20151223
  Transmission Date: 20160305
  Serious: Yes (Other)
  Sender: FDA-Public Use
  Company Number: None

PATIENT
  Age: 34 Year
  Sex: Female

DRUGS (1)
  1. ENOXAPARIN 40 [Suspect]
     Active Substance: ENOXAPARIN
     Route: 058

REACTIONS (3)
  - Injection site pain [None]
  - Injection site bruising [None]
  - Product quality issue [None]

NARRATIVE: CASE EVENT DATE: 20151221
